FAERS Safety Report 5728231-9 (Version None)
Quarter: 2008Q2

REPORT INFORMATION
  Report Type: 
  Country: None (occurrence: None)
  Receive Date: 20080505
  Receipt Date: 20080505
  Transmission Date: 20081010
  Serious: No
  Sender: FDA-Public Use
  Company Number: None

PATIENT
  Sex: Female

DRUGS (1)
  1. TUBERCULIN PPD, SANOFI-PASTEUR [Suspect]
     Indication: TUBERCULIN TEST
     Dosage: 0.1 ML ANNUAL PPD INTRADERMA
     Route: 023
     Dates: start: 20080401

REACTIONS (5)
  - DRUG HYPERSENSITIVITY [None]
  - INJECTION SITE ERYTHEMA [None]
  - INJECTION SITE IRRITATION [None]
  - INJECTION SITE PRURITUS [None]
  - INJECTION SITE SWELLING [None]
